FAERS Safety Report 5571303-2 (Version None)
Quarter: 2007Q4

REPORT INFORMATION
  Report Type: 
  Country: None (occurrence: None)
  Receive Date: 20071221
  Receipt Date: 20070524
  Transmission Date: 20080405
  Serious: No
  Sender: FDA-Public Use
  Company Number: A0652838A

PATIENT
  Age: 60 Year
  Sex: Female

DRUGS (1)
  1. FLONASE [Suspect]
     Dosage: 120MCG PER DAY
     Route: 045
     Dates: end: 20070521

REACTIONS (2)
  - FUNGAL INFECTION [None]
  - RHINORRHOEA [None]
